FAERS Safety Report 5854534-3 (Version None)
Quarter: 2008Q3

REPORT INFORMATION
  Report Type: 
  Country: None (occurrence: None)
  Receive Date: 20080822
  Receipt Date: 20070830
  Transmission Date: 20090109
  Serious: No
  Sender: FDA-Public Use
  Company Number: US-ABBOTT-07P-163-0416016-00

PATIENT
  Sex: Female
  Weight: 74.91 kg

DRUGS (2)
  1. SYNTHROID [Suspect]
     Indication: HYPOTHYROIDISM
     Route: 048
     Dates: start: 20040101
  2. LIOTHYRONINE SODIUM [Concomitant]
     Indication: HYPOTHYROIDISM
     Route: 048
     Dates: start: 20070601

REACTIONS (3)
  - ANGIOEDEMA [None]
  - EYE SWELLING [None]
  - PHARYNGEAL OEDEMA [None]
